FAERS Safety Report 15578818 (Version 1)
Quarter: 2018Q4

REPORT INFORMATION
  Report Type: Spontaneous
  Country: JP (occurrence: JP)
  Receive Date: 20181102
  Receipt Date: 20181102
  Transmission Date: 20190205
  Serious: Yes (Other)
  Sender: FDA-Public Use
  Company Number: JP-MYLANLABS-2018M1081706

PATIENT
  Age: 69 Year
  Sex: Male

DRUGS (6)
  1. ERLOTINIB [Suspect]
     Active Substance: ERLOTINIB
     Indication: LUNG ADENOCARCINOMA STAGE IV
     Dosage: ALTERNATING THERAPY WITH ERLOTINIB AND SYSTEMIC CHEMOTHERAPY COMPRISING BEVACIZUMAB AND PEMETREXE...
     Route: 065
  2. BEVACIZUMAB. [Concomitant]
     Active Substance: BEVACIZUMAB
     Indication: LUNG ADENOCARCINOMA STAGE IV
     Dosage: ALTERNATING THERAPY WITH ERLOTINIB AND SYSTEMIC CHEMOTHERAPY COMPRISING BEVACIZUMAB AND PEMETREXE...
     Route: 065
  3. PEMETREXED. [Concomitant]
     Active Substance: PEMETREXED
     Indication: LUNG ADENOCARCINOMA STAGE IV
     Dosage: ALTERNATING THERAPY WITH ERLOTINIB AND SYSTEMIC CHEMOTHERAPY COMPRISING BEVACIZUMAB AND PEMETREXE...
     Route: 065
  4. AFATINIB [Suspect]
     Active Substance: AFATINIB
     Indication: LUNG ADENOCARCINOMA STAGE IV
     Route: 065
     Dates: start: 201704
  5. CISPLATIN. [Concomitant]
     Active Substance: CISPLATIN
     Indication: SMALL CELL LUNG CANCER
     Dosage: FOUR CYCLES OF COMBINED CHEMOTHERAPY WITH CISPLATIN AND IRINOTECAN
     Route: 065
     Dates: start: 201610
  6. IRINOTECAN [Concomitant]
     Active Substance: IRINOTECAN
     Indication: SMALL CELL LUNG CANCER
     Dosage: FOUR CYCLES OF COMBINED CHEMOTHERAPY WITH CISPLATIN AND IRINOTECAN
     Route: 065
     Dates: start: 201610

REACTIONS (1)
  - Drug resistance [Unknown]
